FAERS Safety Report 9611032 (Version 4)
Quarter: 2015Q1

REPORT INFORMATION
  Report Type: Report from Study
  Country: IT (occurrence: IT)
  Receive Date: 20131009
  Receipt Date: 20150317
  Transmission Date: 20150721
  Serious: Yes (Death, Other)
  Sender: FDA-Public Use
  Company Number: IT-GLAXOSMITHKLINE-Z0018738B

PATIENT
  Age: 72 Year
  Sex: Male
  Weight: 85 kg

DRUGS (2)
  1. PLACEBO [Suspect]
     Active Substance: UNSPECIFIED INGREDIENT
     Indication: MALIGNANT MELANOMA
     Dosage: UNK, QD
     Route: 048
     Dates: start: 20120810, end: 20130221
  2. DABRAFENIB [Suspect]
     Active Substance: DABRAFENIB
     Indication: MALIGNANT MELANOMA
     Dosage: 150 MG, BID
     Route: 048
     Dates: start: 20120810, end: 20130221

REACTIONS (1)
  - Bile duct adenocarcinoma [Fatal]

NARRATIVE: CASE EVENT DATE: 20130116
